FAERS Safety Report 5873124-X (Version None)
Quarter: 2008Q3

REPORT INFORMATION
  Report Type: 
  Country: None (occurrence: None)
  Receive Date: 20080908
  Receipt Date: 20080825
  Transmission Date: 20090109
  Serious: Yes (Hospitalization)
  Sender: FDA-Public Use
  Company Number: CN-BRISTOL-MYERS SQUIBB COMPANY-14326615

PATIENT
  Age: 50 Year
  Sex: Female
  Weight: 60 kg

DRUGS (4)
  1. METFORMIN HCL [Suspect]
     Indication: INSULIN-REQUIRING TYPE 2 DIABETES MELLITUS
     Route: 048
     Dates: start: 20080702, end: 20080822
  2. NOVOLOG MIX 70/30 [Suspect]
     Indication: INSULIN-REQUIRING TYPE 2 DIABETES MELLITUS
     Dosage: TAKEN AS 50 FLEX PEN AS 24IU AND 16IU FROM 5-22AUG AND 30 FLEX PEN16IU FROM 5-22AUG08.
     Route: 058
     Dates: start: 20080805, end: 20080822
  3. LOSARTAN POTASSIUM [Concomitant]
     Dates: start: 20080701, end: 20080822
  4. ASPIRIN [Concomitant]
     Dates: start: 20050119, end: 20080822

REACTIONS (1)
  - INTESTINAL OBSTRUCTION [None]
